FAERS Safety Report 9340270 (Version 1)
Quarter: 2013Q2

REPORT INFORMATION
  Report Type: Spontaneous
  Country: US (occurrence: None)
  Receive Date: 20130610
  Receipt Date: 20130610
  Transmission Date: 20140414
  Serious: Yes (Death, Disabling)
  Sender: FDA-Public Use
  Company Number: None

PATIENT
  Sex: Female
  Weight: 58.97 kg

DRUGS (2)
  1. CYCLOSPORINE [Suspect]
     Indication: BONE MARROW TRANSPLANT
     Route: 048
     Dates: start: 2010, end: 2011
  2. PROGRAF (TACROLIMUS) [Suspect]
     Indication: BONE MARROW TRANSPLANT
     Route: 048
     Dates: start: 2010, end: 2011

REACTIONS (6)
  - Gait disturbance [None]
  - Arthralgia [None]
  - Local swelling [None]
  - Local swelling [None]
  - Brain injury [None]
  - Brain death [None]
